FAERS Safety Report 12926071 (Version 1)
Quarter: 2016Q4

REPORT INFORMATION
  Report Type: Spontaneous
  Country: US (occurrence: US)
  Receive Date: 20161108
  Receipt Date: 20161108
  Transmission Date: 20170207
  Serious: No
  Sender: FDA-Public Use
  Company Number: US-SA-2016SA168549

PATIENT
  Age: 70 Year
  Sex: Female

DRUGS (12)
  1. ALIROCUMAB PREFILLED PEN [Concomitant]
     Active Substance: ALIROCUMAB
     Dates: start: 20160517
  2. MONTELUKAST [Concomitant]
     Active Substance: MONTELUKAST SODIUM
  3. CARTIA XT [Concomitant]
     Active Substance: DILTIAZEM HYDROCHLORIDE
     Dosage: CAP 120/24 HOUR
  4. GABAPENTIN. [Concomitant]
     Active Substance: GABAPENTIN
  5. METRONIDAZOL [Concomitant]
     Active Substance: METRONIDAZOLE
  6. TIZANIDINE. [Concomitant]
     Active Substance: TIZANIDINE
  7. FLUCONAZOLE. [Concomitant]
     Active Substance: FLUCONAZOLE
  8. METFORMIN [Concomitant]
     Active Substance: METFORMIN HYDROCHLORIDE
  9. PRALUENT [Suspect]
     Active Substance: ALIROCUMAB
     Route: 065
     Dates: start: 20160517
  10. AMOXICILLIN. [Concomitant]
     Active Substance: AMOXICILLIN
  11. DICLOFENAC [Concomitant]
     Active Substance: DICLOFENAC
  12. HYDROCODONE BITARTRATE AND ACETAMINOPHEN [Concomitant]
     Active Substance: ACETAMINOPHEN\HYDROCODONE BITARTRATE
     Dosage: 5-325MG

REACTIONS (1)
  - Injection site rash [Recovered/Resolved]

NARRATIVE: CASE EVENT DATE: 2016
